FAERS Safety Report 8671803 (Version 4)
Quarter: 2012Q4

REPORT INFORMATION
  Report Type: 
  Country: US (occurrence: US)
  Receive Date: 20120718
  Receipt Date: 20120914
  Transmission Date: 20130627
  Serious: Yes (Other)
  Sender: FDA-Public Use
  Company Number: US-TEVA-348531USA

PATIENT
  Age: 29 None
  Sex: Female

DRUGS (2)
  1. CLARAVIS [Suspect]
     Dosage: 40 Milligram Daily;
     Dates: start: 20120625, end: 20120712
  2. ORAL CONTRACEPTIVE NOS [Concomitant]
     Indication: CONTRACEPTION

REACTIONS (1)
  - Unintended pregnancy [Unknown]
